FAERS Safety Report 11359549 (Version 10)
Quarter: 2019Q2

REPORT INFORMATION
  Report Type: Report from Study
  Country: US (occurrence: US)
  Receive Date: 20150807
  Receipt Date: 20190520
  Transmission Date: 20190711
  Serious: No
  Sender: FDA-Public Use
  Company Number: PHEH2015US014903

PATIENT
  Age: 17 Year
  Sex: Female

DRUGS (5)
  1. AFINITOR [Suspect]
     Active Substance: EVEROLIMUS
     Dosage: 10 MG, QD
     Route: 048
     Dates: start: 20150730
  2. CARBAMAZEPINE. [Concomitant]
     Active Substance: CARBAMAZEPINE
     Indication: PRODUCT USED FOR UNKNOWN INDICATION
     Route: 065
  3. AFINITOR [Suspect]
     Active Substance: EVEROLIMUS
     Dosage: 10 MG, QOD
     Route: 048
  4. IRON [Concomitant]
     Active Substance: IRON
     Indication: PRODUCT USED FOR UNKNOWN INDICATION
     Route: 065
  5. AFINITOR [Suspect]
     Active Substance: EVEROLIMUS
     Indication: ASTROCYTOMA, LOW GRADE
     Dosage: 10 MG, QD
     Route: 048
     Dates: start: 20150626

REACTIONS (14)
  - Breast pain [Unknown]
  - Swelling face [Unknown]
  - Inflammation [Unknown]
  - Drug level decreased [Unknown]
  - Stomatitis [Not Recovered/Not Resolved]
  - Dizziness [Unknown]
  - Dyspnoea [Unknown]
  - Pharyngeal inflammation [Unknown]
  - Mouth ulceration [Unknown]
  - Pain [Unknown]
  - Scar pain [Unknown]
  - Nausea [Unknown]
  - Central nervous system lesion [Unknown]
  - Vomiting [Unknown]

NARRATIVE: CASE EVENT DATE: 20150730
